FAERS Safety Report 6194357-1 (Version None)
Quarter: 2009Q2

REPORT INFORMATION
  Report Type: 
  Country: None (occurrence: None)
  Receive Date: 20090519
  Receipt Date: 20090511
  Transmission Date: 20091009
  Serious: Yes (Life-Threatening, Hospitalization)
  Sender: FDA-Public Use
  Company Number: DK-NOVOPROD-287137

PATIENT
  Sex: Female
  Weight: 2 kg

DRUGS (5)
  1. LEVEMIR [Suspect]
     Indication: DIABETES MELLITUS
     Dosage: 30 IU, QD
     Route: 064
     Dates: start: 20080320
  2. NOVOLOG [Suspect]
     Indication: DIABETES MELLITUS
     Dosage: 26 IU, QD
     Route: 064
  3. INSULATARD FLEXPEN [Suspect]
     Indication: DIABETES MELLITUS
     Dosage: 26 IU, QD
     Route: 064
     Dates: start: 20080101, end: 20080319
  4. CORODIL                            /00042901/ [Concomitant]
     Dosage: 20 MG, QD
     Route: 064
     Dates: end: 20071201
  5. METYLDOPA [Concomitant]
     Dates: start: 20080306

REACTIONS (3)
  - ASPHYXIA [None]
  - HAEMODYNAMIC TEST ABNORMAL [None]
  - NEONATAL RESPIRATORY DISTRESS SYNDROME [None]
